FAERS Safety Report 14428840 (Version 1)
Quarter: 2018Q1

REPORT INFORMATION
  Report Type: Report from Study
  Country: US (occurrence: US)
  Receive Date: 20180123
  Receipt Date: 20180123
  Transmission Date: 20180509
  Serious: No
  Sender: FDA-Public Use
  Company Number: US-AMGEN-USASL2017170831

PATIENT
  Age: 84 Year
  Sex: Female

DRUGS (4)
  1. REPATHA [Suspect]
     Active Substance: EVOLOCUMAB
     Indication: ARTERIOSCLEROSIS
  2. REPATHA [Suspect]
     Active Substance: EVOLOCUMAB
     Indication: ANGINA PECTORIS
  3. REPATHA [Suspect]
     Active Substance: EVOLOCUMAB
     Indication: CONGESTIVE CARDIOMYOPATHY
  4. REPATHA [Suspect]
     Active Substance: EVOLOCUMAB
     Indication: HYPERLIPIDAEMIA
     Dosage: 140 MG, Q2WK
     Route: 065

REACTIONS (4)
  - Vein disorder [Recovered/Resolved]
  - Hyperhidrosis [Recovered/Resolved]
  - Nausea [Recovered/Resolved]
  - Feeling of body temperature change [Recovered/Resolved]
